FAERS Safety Report 9358040 (Version 2)
Quarter: 2013Q4

REPORT INFORMATION
  Report Type: Spontaneous
  Country: FR (occurrence: FR)
  Receive Date: 20130620
  Receipt Date: 20131017
  Transmission Date: 20140711
  Serious: Yes (Hospitalization)
  Sender: FDA-Public Use
  Company Number: FR-MERCK-1306FRA005788

PATIENT
  Age: 79 Year
  Sex: Female

DRUGS (3)
  1. POLARAMINE [Suspect]
     Indication: PRURITUS
     Dosage: 2 MG, QD
     Route: 048
     Dates: start: 20120705, end: 20121007
  2. AERIUS [Suspect]
     Indication: PRURITUS
     Dosage: 5 MG, BID
     Route: 048
     Dates: start: 20120705, end: 20121007
  3. PROTOPIC [Suspect]
     Indication: PRURITUS
     Dosage: 1 DF, QD
     Dates: start: 20121005, end: 20121007

REACTIONS (4)
  - Dyspnoea [Unknown]
  - Cardiac failure [Recovered/Resolved]
  - Atrial fibrillation [Recovering/Resolving]
  - Bundle branch block left [Unknown]
